FAERS Safety Report 8916113 (Version 1)
Quarter: 2012Q4

REPORT INFORMATION
  Report Type: 
  Country: US (occurrence: US)
  Receive Date: 20121120
  Receipt Date: 20121120
  Transmission Date: 20130627
  Serious: Yes (Hospitalization)
  Sender: FDA-Public Use
  Company Number: US-ELI_LILLY_AND_COMPANY-US201202006721

PATIENT
  Sex: Male

DRUGS (2)
  1. FORTEO [Suspect]
     Indication: OSTEOPOROSIS
     Dosage: UNK, qd
     Route: 065
     Dates: start: 201011
  2. FORTEO [Suspect]
     Dosage: UNK, qd
     Dates: start: 201202

REACTIONS (2)
  - Hospitalisation [Unknown]
  - Drug dose omission [Unknown]
